FAERS Safety Report 5418867-7 (Version None)
Quarter: 2007Q3

REPORT INFORMATION
  Report Type: 
  Country: None (occurrence: None)
  Receive Date: 20070718
  Receipt Date: 20060717
  Transmission Date: 20080115
  Serious: Yes (Hospitalization, Other)
  Sender: FDA-Public Use
  Company Number: 2006090978

PATIENT
  Age: 52 Year
  Sex: Female
  Weight: 83.9154 kg

DRUGS (1)
  1. CELEBREX [Suspect]
     Indication: ARTHRITIS
     Dosage: 400 MG (200 MG, 2 IN 1 D)

REACTIONS (5)
  - ANXIETY [None]
  - FOOT FRACTURE [None]
  - HYPERTENSION [None]
  - NERVOUSNESS [None]
  - TRANSIENT ISCHAEMIC ATTACK [None]
